FAERS Safety Report 7575569-9 (Version None)
Quarter: 2011Q2

REPORT INFORMATION
  Report Type: 
  Country: None (occurrence: None)
  Receive Date: 20110627
  Receipt Date: 20110616
  Transmission Date: 20111010
  Serious: Yes (Death, Hospitalization)
  Sender: FDA-Public Use
  Company Number: FR-UCBSA-035460

PATIENT
  Sex: Female

DRUGS (6)
  1. NOCTAMIDE [Suspect]
     Route: 048
     Dates: start: 20110427, end: 20110509
  2. PERMIXON [Suspect]
     Dosage: 1 UNIT DAILY
     Route: 048
     Dates: start: 20110427, end: 20110507
  3. MEMANTINE HYDROCHLORIDE [Suspect]
     Route: 048
     Dates: start: 20110427, end: 20110505
  4. AUGMENTIN '125' [Suspect]
     Route: 042
     Dates: start: 20110427, end: 20110505
  5. HALDOL [Suspect]
     Dosage: 2MG/ML, 1 UNIT
     Route: 048
     Dates: start: 20110427, end: 20110505
  6. XYZAL [Suspect]
     Dosage: 3 UNITS DAILY
     Route: 048
     Dates: start: 20110501, end: 20110505

REACTIONS (2)
  - OVERDOSE [None]
  - PANCYTOPENIA [None]
